FAERS Safety Report 17754514 (Version 2)
Quarter: 2020Q2

REPORT INFORMATION
  Report Type: Report from Study
  Country: CO (occurrence: CO)
  Receive Date: 20200507
  Receipt Date: 20200511
  Transmission Date: 20200714
  Serious: Yes (Other)
  Sender: FDA-Public Use
  Company Number: CO-ROCHE-2591459

PATIENT
  Age: 35 Year
  Sex: Female

DRUGS (1)
  1. RITUXIMAB. [Suspect]
     Active Substance: RITUXIMAB
     Indication: DIFFUSE LARGE B-CELL LYMPHOMA
     Route: 065

REACTIONS (19)
  - Paranoia [Unknown]
  - Nausea [Unknown]
  - Decreased appetite [Unknown]
  - Product supply issue [Unknown]
  - Amenorrhoea [Unknown]
  - Nail discolouration [Unknown]
  - Dizziness [Unknown]
  - Dry eye [Unknown]
  - Aptyalism [Unknown]
  - Product distribution issue [Unknown]
  - Fatigue [Unknown]
  - Decreased immune responsiveness [Unknown]
  - Paraesthesia [Unknown]
  - Skin disorder [Unknown]
  - Parosmia [Unknown]
  - Insomnia [Unknown]
  - Dry skin [Unknown]
  - Muscle spasms [Unknown]
  - Nail disorder [Unknown]
